FAERS Safety Report 7367779-0 (Version None)
Quarter: 2011Q1

REPORT INFORMATION
  Report Type: 
  Country: None (occurrence: None)
  Receive Date: 20110322
  Receipt Date: 20110317
  Transmission Date: 20110831
  Serious: Yes (Other)
  Sender: FDA-Public Use
  Company Number: US-PFIZER INC-2011060129

PATIENT
  Sex: Female

DRUGS (3)
  1. LIPITOR [Suspect]
     Dosage: 20 MG, UNK
  2. LIPITOR [Suspect]
     Dosage: 30 MG, UNK
  3. LIPITOR [Suspect]
     Dosage: 40 MG, UNK

REACTIONS (4)
  - HIP ARTHROPLASTY [None]
  - ARTHRALGIA [None]
  - DRUG INEFFECTIVE [None]
  - ARTHROPATHY [None]
